FAERS Safety Report 11588601 (Version 1)
Quarter: 2015Q4

REPORT INFORMATION
  Report Type: Spontaneous
  Country: US (occurrence: None)
  Receive Date: 20151001
  Receipt Date: 20151001
  Transmission Date: 20160304
  Serious: Yes (Other)
  Sender: FDA-Public Use
  Company Number: None

PATIENT
  Age: 60 Year
  Sex: Female
  Weight: 61.24 kg

DRUGS (12)
  1. NORCO [Concomitant]
     Active Substance: ACETAMINOPHEN\HYDROCODONE BITARTRATE
  2. LORAZEPAM. [Concomitant]
     Active Substance: LORAZEPAM
  3. VIT.B COMPLEX [Concomitant]
  4. LYSINE [Concomitant]
     Active Substance: LYSINE
  5. ALLICIN [Concomitant]
  6. RED YEAST RICE [Concomitant]
     Active Substance: DIETARY SUPPLEMENT
  7. MELATONIN [Concomitant]
     Active Substance: MELATONIN
  8. PRISTIQ EXTENDED RELEASE [Concomitant]
     Active Substance: DESVENLAFAXINE SUCCINATE
  9. COQ10 [Concomitant]
     Active Substance: UBIDECARENONE
  10. DESVENLAFAXINE 100MG [Suspect]
     Active Substance: DESVENLAFAXINE
     Indication: MAJOR DEPRESSION
     Dosage: 1 PILL
     Route: 048
     Dates: start: 20150508, end: 20150514
  11. ASPIRIN. [Concomitant]
     Active Substance: ASPIRIN
  12. B12 WOMAN-SPECIFIC MULTI [Concomitant]

REACTIONS (6)
  - Depressed mood [None]
  - Agitation [None]
  - Anxiety [None]
  - Product quality issue [None]
  - Paraesthesia [None]
  - Disorientation [None]

NARRATIVE: CASE EVENT DATE: 20150514
